FAERS Safety Report 8449672-5 (Version None)
Quarter: 2012Q2

REPORT INFORMATION
  Report Type: 
  Country: None (occurrence: None)
  Receive Date: 20120620
  Receipt Date: 20120618
  Transmission Date: 20120825
  Serious: No
  Sender: FDA-Public Use
  Company Number: US-PFIZER INC-2012011012

PATIENT
  Sex: Male
  Weight: 77.098 kg

DRUGS (3)
  1. CHANTIX [Suspect]
     Dosage: 1 MG, UNK
  2. ATENOLOL [Concomitant]
     Indication: HYPERTENSION
     Dosage: 25 MG, DAILY
  3. CHANTIX [Suspect]
     Indication: SMOKING CESSATION THERAPY
     Dosage: 0.5 MG, DAILY
     Dates: start: 20110519, end: 20110101

REACTIONS (1)
  - DRUG INEFFECTIVE [None]
